FAERS Safety Report 8274418-3 (Version None)
Quarter: 2012Q2

REPORT INFORMATION
  Report Type: 
  Country: None (occurrence: None)
  Receive Date: 20120409
  Receipt Date: 20120326
  Transmission Date: 20120825
  Serious: Yes (Hospitalization)
  Sender: FDA-Public Use
  Company Number: USW201202-000029

PATIENT
  Age: 74 Year
  Sex: Male

DRUGS (5)
  1. REQUIP XL [Suspect]
     Indication: PARKINSON'S DISEASE
     Dosage: 20 MG PER DAY, ORAL
     Route: 048
  2. APOKYN [Suspect]
     Indication: PARKINSON'S DISEASE
     Dosage: INFUSION, 2-5 MG/HOUR, SUBCUTANEOUS
     Route: 058
     Dates: start: 20120215, end: 20120219
  3. STALEVO 100 [Suspect]
     Indication: PARKINSON'S DISEASE
     Dosage: 200 MG, SIX TIMES A DAY, ORAL
     Route: 048
  4. MODAPAR (BENSERAZIDE, LEVODOPA) [Suspect]
     Indication: PARKINSON'S DISEASE
     Dosage: 125 MG, 1-2 TIMES A DAY (DISPERSIBLE), ORAL
     Route: 048
  5. DOMPERIDONE (DOMPERIDONE) [Suspect]
     Indication: PARKINSON'S DISEASE
     Dosage: 20 MG, 3 TIMES A DAY, ORAL
     Route: 048
     Dates: start: 20120212, end: 20120212

REACTIONS (2)
  - PNEUMONIA [None]
  - ATRIAL FIBRILLATION [None]
